FAERS Safety Report 12647935 (Version 1)
Quarter: 2016Q3

REPORT INFORMATION
  Report Type: Spontaneous
  Country: US (occurrence: None)
  Receive Date: 20160811
  Receipt Date: 20160811
  Transmission Date: 20161109
  Serious: No
  Sender: FDA-Public Use
  Company Number: None

PATIENT
  Age: 37 Year
  Sex: Male

DRUGS (1)
  1. HUMIRA [Suspect]
     Active Substance: ADALIMUMAB
     Route: 058
     Dates: start: 20160623, end: 20160706

REACTIONS (5)
  - Pain [None]
  - Fatigue [None]
  - Therapy cessation [None]
  - Asthenia [None]
  - Apathy [None]

NARRATIVE: CASE EVENT DATE: 20160623
